FAERS Safety Report 16626797 (Version 4)
Quarter: 2020Q2

REPORT INFORMATION
  Report Type: Report from Study
  Country: TW (occurrence: TW)
  Receive Date: 20190724
  Receipt Date: 20200430
  Transmission Date: 20200713
  Serious: Yes (Hospitalization)
  Sender: FDA-Public Use
  Company Number: TW-INCYTE CORPORATION-2019IN007404

PATIENT

DRUGS (67)
  1. ASPIRIN [ACETYLSALICYLIC ACID] [Concomitant]
     Active Substance: ASPIRIN
     Indication: CHOLELITHIASIS
     Dosage: 100 MG
     Route: 048
     Dates: start: 20051017
  2. CIMETIDINE [Concomitant]
     Active Substance: CIMETIDINE
     Indication: BILIARY TRACT INFECTION
  3. DOMPERIDONE [Concomitant]
     Active Substance: DOMPERIDONE
     Indication: GASTRIC ULCER
     Dosage: 10 MG
     Route: 048
     Dates: start: 20171017, end: 20180226
  4. FAMOTIDINE. [Concomitant]
     Active Substance: FAMOTIDINE
     Indication: PYREXIA
     Dosage: 20 MG
     Route: 048
     Dates: start: 20190621, end: 20190624
  5. FLOPROPIONE [Concomitant]
     Active Substance: FLOPROPIONE
     Indication: CHOLELITHIASIS
     Dosage: 40 MG
     Route: 048
     Dates: start: 20180316, end: 20180321
  6. MEBEVERINE [Concomitant]
     Active Substance: MEBEVERINE
     Indication: HELICOBACTER GASTRITIS
     Dosage: 135 MG
     Route: 048
     Dates: start: 20180605, end: 20180625
  7. ACETAMINOPHEN. [Concomitant]
     Active Substance: ACETAMINOPHEN
     Indication: ABDOMINAL PAIN UPPER
     Dosage: 500 MG
     Route: 048
     Dates: start: 20180117, end: 20180425
  8. ACETAMINOPHEN. [Concomitant]
     Active Substance: ACETAMINOPHEN
     Indication: SEPSIS
     Dosage: 500 MG
     Route: 048
     Dates: start: 20190621, end: 20190625
  9. ACETAMINOPHEN. [Concomitant]
     Active Substance: ACETAMINOPHEN
     Indication: BILIARY TRACT INFECTION
  10. CIMETIDINE [Concomitant]
     Active Substance: CIMETIDINE
     Indication: HELICOBACTER GASTRITIS
     Dosage: 200 MG
     Route: 048
     Dates: start: 20180316, end: 20180321
  11. DEXLANSOPRAZOLE [Concomitant]
     Active Substance: DEXLANSOPRAZOLE
     Indication: GASTROOESOPHAGEAL REFLUX DISEASE
     Dosage: 60 MG
     Route: 048
     Dates: start: 20180321, end: 20180723
  12. DILTIAZEM. [Concomitant]
     Active Substance: DILTIAZEM
     Indication: HYPERTENSION
     Dosage: 30 MG
     Route: 048
     Dates: start: 20181016, end: 20190121
  13. FAMOTIDINE. [Concomitant]
     Active Substance: FAMOTIDINE
     Indication: GASTRIC ULCER
     Dosage: 20 MG
     Route: 048
     Dates: start: 20171107, end: 20180129
  14. FAMOTIDINE. [Concomitant]
     Active Substance: FAMOTIDINE
     Indication: SEPSIS
  15. MOSAPRIDE CITRATE [Concomitant]
     Active Substance: MOSAPRIDE CITRATE
     Indication: PYREXIA
     Dosage: 5 MG
     Route: 048
     Dates: start: 20190621, end: 20190621
  16. PIRENOXINE [PIRENOXINE SODIUM] [Concomitant]
     Indication: OPHTHALMIC HERPES ZOSTER
     Dosage: 5 ML
     Route: 047
     Dates: start: 20171024
  17. ASPIRIN [ACETYLSALICYLIC ACID] [Concomitant]
     Active Substance: ASPIRIN
     Indication: CHOLECYSTITIS ACUTE
  18. CALCIUM ACETATE. [Concomitant]
     Active Substance: CALCIUM ACETATE
     Indication: CHRONIC KIDNEY DISEASE
     Dosage: 667 MG
     Route: 048
     Dates: start: 20170913
  19. CIMETIDINE [Concomitant]
     Active Substance: CIMETIDINE
     Indication: PYREXIA
     Dosage: 200 MG
     Route: 048
     Dates: start: 20180724, end: 20190321
  20. FLOPROPIONE [Concomitant]
     Active Substance: FLOPROPIONE
     Indication: CHOLECYSTITIS ACUTE
     Dosage: 40 MG
     Route: 048
     Dates: start: 20190606, end: 20190704
  21. FLUDIAZEPAM [Concomitant]
     Active Substance: FLUDIAZEPAM
     Indication: SLEEP DISORDER
     Dosage: 0.25 MG
     Route: 048
     Dates: start: 20171024, end: 20180316
  22. FOLIC ACID. [Concomitant]
     Active Substance: FOLIC ACID
     Dosage: 5 MG
     Route: 048
     Dates: start: 20180613
  23. METOCLOPRAMIDE. [Concomitant]
     Active Substance: METOCLOPRAMIDE
     Indication: HELICOBACTER GASTRITIS
  24. SUCRALFATE. [Concomitant]
     Active Substance: SUCRALFATE
     Dosage: 500 MG
     Route: 048
     Dates: start: 20190321, end: 20190322
  25. SUCRALFATE. [Concomitant]
     Active Substance: SUCRALFATE
     Dosage: 500 MG
     Route: 048
     Dates: start: 20190402
  26. CAPTOPRIL. [Concomitant]
     Active Substance: CAPTOPRIL
     Dosage: 25 MG
     Route: 048
     Dates: start: 20190203, end: 20190208
  27. ASCORBIC ACID. [Concomitant]
     Active Substance: ASCORBIC ACID
     Indication: CHRONIC KIDNEY DISEASE
     Dosage: 1 DF
     Route: 048
     Dates: start: 20181030
  28. HI-BESTON [Concomitant]
     Indication: CHRONIC KIDNEY DISEASE
     Dosage: 50 MG
     Route: 048
     Dates: start: 20091117
  29. LOPERAMIDE [Concomitant]
     Active Substance: LOPERAMIDE
     Indication: PEPTIC ULCER
     Dosage: 2 MG
     Route: 048
     Dates: start: 20180626, end: 20190321
  30. LOPERAMIDE [Concomitant]
     Active Substance: LOPERAMIDE
     Dosage: 2 MG
     Route: 048
     Dates: start: 20190402, end: 20190704
  31. LORAZEPAM. [Concomitant]
     Active Substance: LORAZEPAM
     Indication: SLEEP DISORDER
     Dosage: 1 MG
     Route: 048
     Dates: start: 20170411, end: 20171218
  32. METFORMIN [Concomitant]
     Active Substance: METFORMIN HYDROCHLORIDE
     Indication: TYPE 2 DIABETES MELLITUS
     Dosage: 500 MG
     Route: 048
     Dates: start: 20190313
  33. MOSAPRIDE CITRATE [Concomitant]
     Active Substance: MOSAPRIDE CITRATE
     Indication: SEPSIS
  34. PENTOXIFYLLIN [Concomitant]
     Active Substance: PENTOXIFYLLINE
     Indication: ERECTILE DYSFUNCTION
     Dosage: 400 MG
     Route: 048
     Dates: start: 20160126, end: 20190529
  35. CAPTOPRIL. [Concomitant]
     Active Substance: CAPTOPRIL
     Indication: HYPERTENSION
     Dosage: 25 MG
     Route: 048
     Dates: start: 20181003, end: 20181006
  36. DIPYRIDAMOLE. [Concomitant]
     Active Substance: DIPYRIDAMOLE
     Indication: CORONARY ARTERY DISEASE
     Dosage: 25 MG
     Route: 048
     Dates: start: 20080922
  37. DOMPERIDONE [Concomitant]
     Active Substance: DOMPERIDONE
     Indication: HELICOBACTER GASTRITIS
  38. ENTECAVIR. [Concomitant]
     Active Substance: ENTECAVIR
     Indication: HEPATITIS CHRONIC ACTIVE
     Dosage: 0.5 MG
     Route: 048
     Dates: start: 20180626, end: 20190321
  39. FAMOTIDINE. [Concomitant]
     Active Substance: FAMOTIDINE
     Indication: BILIARY TRACT INFECTION
  40. FLUDIAZEPAM [Concomitant]
     Active Substance: FLUDIAZEPAM
     Dosage: 0.25 MG
     Route: 048
     Dates: start: 20190313, end: 20190612
  41. ISOSORBIDE DINITRATE. [Concomitant]
     Active Substance: ISOSORBIDE DINITRATE
     Indication: HYPERTENSION
     Dosage: 10 MG
     Route: 048
     Dates: start: 20190122, end: 20190221
  42. OTILONIUM BROMIDE [Concomitant]
     Active Substance: OTILONIUM BROMIDE
     Indication: GASTROOESOPHAGEAL REFLUX DISEASE
     Dosage: 40 MG
     Route: 048
     Dates: start: 20171024, end: 20180316
  43. ZINC GLUCONATE [Concomitant]
     Active Substance: ZINC GLUCONATE
     Indication: ERECTILE DYSFUNCTION
     Dosage: 78 MG
     Route: 065
     Dates: start: 20160119, end: 20190529
  44. ACETAMINOPHEN. [Concomitant]
     Active Substance: ACETAMINOPHEN
     Indication: PYREXIA
     Dosage: 500 MG
     Route: 048
     Dates: start: 20181003, end: 20181006
  45. CIMETIDINE [Concomitant]
     Active Substance: CIMETIDINE
     Indication: GASTRIC ULCER
     Dosage: 400 MG
     Route: 048
     Dates: start: 20171017, end: 20171106
  46. CIMETIDINE [Concomitant]
     Active Substance: CIMETIDINE
     Indication: SEPSIS
     Dosage: 200 MG
     Route: 048
     Dates: start: 20190622
  47. CODEINE [Concomitant]
     Active Substance: CODEINE
     Indication: PYREXIA
     Dosage: 30 MG
     Route: 048
     Dates: start: 20190621, end: 20190621
  48. CODEINE [Concomitant]
     Active Substance: CODEINE
     Indication: SEPSIS
  49. MEBEVERINE [Concomitant]
     Active Substance: MEBEVERINE
     Indication: GASTRIC ULCER
     Dosage: 135 MG
     Route: 048
     Dates: start: 20170801, end: 20171023
  50. METOCLOPRAMIDE. [Concomitant]
     Active Substance: METOCLOPRAMIDE
     Indication: GASTRIC ULCER
     Dosage: 5 MG
     Route: 048
     Dates: start: 20190319, end: 20190321
  51. JAKAVI [Suspect]
     Active Substance: RUXOLITINIB
     Indication: MYELOFIBROSIS
     Dosage: 30 MG, QD
     Route: 048
     Dates: start: 20171017
  52. JAKAVI [Suspect]
     Active Substance: RUXOLITINIB
     Dosage: 30 MG, QD
     Route: 048
     Dates: start: 20190621
  53. CHLORAMPHENICOL [Concomitant]
     Active Substance: CHLORAMPHENICOL
     Indication: OPHTHALMIC HERPES ZOSTER
     Dosage: 5 ML, OPH SOLN
     Route: 047
     Dates: start: 20171024
  54. CODEINE [Concomitant]
     Active Substance: CODEINE
     Indication: BILIARY TRACT INFECTION
  55. FAMOTIDINE. [Concomitant]
     Active Substance: FAMOTIDINE
     Indication: HELICOBACTER GASTRITIS
     Dosage: 20 MG
     Route: 048
     Dates: start: 20180130, end: 20180204
  56. FOLIC ACID. [Concomitant]
     Active Substance: FOLIC ACID
     Indication: CHRONIC KIDNEY DISEASE
     Dosage: 5 MG
     Route: 048
     Dates: start: 20080922, end: 20180612
  57. HYOSCINE [Concomitant]
     Active Substance: SCOPOLAMINE
     Indication: PEPTIC ULCER
     Dosage: 10 MG
     Route: 048
     Dates: start: 20180626, end: 20190321
  58. LOSARTAN POTASSIUM. [Concomitant]
     Active Substance: LOSARTAN POTASSIUM
     Indication: HYPERTENSION
     Dosage: 50 MG
     Route: 048
     Dates: start: 20190313
  59. METHYLPREDNISOLONE. [Concomitant]
     Active Substance: METHYLPREDNISOLONE
     Indication: CONTRAST MEDIA ALLERGY
     Dosage: 8 MG
     Route: 048
     Dates: start: 20171017, end: 20180226
  60. MOSAPRIDE CITRATE [Concomitant]
     Active Substance: MOSAPRIDE CITRATE
     Indication: ABDOMINAL PAIN UPPER
     Dosage: 5 MG
     Route: 048
     Dates: start: 20190319, end: 20190322
  61. SUCRALFATE. [Concomitant]
     Active Substance: SUCRALFATE
     Indication: GASTROOESOPHAGEAL REFLUX DISEASE
     Dosage: 500 MG
     Route: 048
     Dates: start: 20180626, end: 20190320
  62. CODEINE [Concomitant]
     Active Substance: CODEINE
     Indication: ABDOMINAL PAIN UPPER
     Dosage: 30 MG, AMP
     Route: 030
     Dates: start: 20190319, end: 20190319
  63. DEXLANSOPRAZOLE [Concomitant]
     Active Substance: DEXLANSOPRAZOLE
     Dosage: 60 MG
     Route: 048
     Dates: start: 20190319, end: 20190704
  64. ENTECAVIR. [Concomitant]
     Active Substance: ENTECAVIR
     Indication: HEPATITIS B
     Dosage: 0.5 MG
     Route: 048
     Dates: start: 20190402
  65. FLUNARIZINE [Concomitant]
     Active Substance: FLUNARIZINE
     Indication: SUDDEN HEARING LOSS
     Dosage: 5 MG
     Route: 048
     Dates: start: 20171017, end: 20180226
  66. MEBEVERINE [Concomitant]
     Active Substance: MEBEVERINE
     Dosage: 135 MG
     Route: 048
     Dates: start: 20190704
  67. MOSAPRIDE CITRATE [Concomitant]
     Active Substance: MOSAPRIDE CITRATE
     Indication: BILIARY TRACT INFECTION

REACTIONS (8)
  - Lipase increased [Unknown]
  - Pyrexia [Recovered/Resolved]
  - Abdominal pain [Recovered/Resolved]
  - Sepsis [Recovered/Resolved]
  - Biliary tract infection [Recovered/Resolved]
  - Chills [Recovered/Resolved]
  - Abdominal pain upper [Recovered/Resolved]
  - Pyrexia [Recovered/Resolved]

NARRATIVE: CASE EVENT DATE: 20181003
